FAERS Safety Report 5332204-8 (Version None)
Quarter: 2007Q1

REPORT INFORMATION
  Report Type: 
  Country: None (occurrence: None)
  Receive Date: 20070306
  Receipt Date: 20060203
  Transmission Date: 20070707
  Serious: Yes (Hospitalization)
  Sender: FDA-Public Use
  Company Number: A03200600706

PATIENT
  Age: 87 Year
  Sex: Female
  Weight: 61.22 kg

DRUGS (3)
  1. PLAVIX [Suspect]
     Indication: CARDIOVASCULAR DISORDER
     Dosage: ORAL
     Route: 048
     Dates: start: 20060125, end: 20060125
  2. VALSARTAN [Concomitant]
  3. GEMFIBROZIL [Concomitant]

REACTIONS (2)
  - DERMATITIS ALLERGIC [None]
  - DIZZINESS [None]
